FAERS Safety Report 7227761-0 (Version None)
Quarter: 2011Q1

REPORT INFORMATION
  Report Type: 
  Country: None (occurrence: None)
  Receive Date: 20110114
  Receipt Date: 20110106
  Transmission Date: 20110831
  Serious: Yes (Hospitalization)
  Sender: FDA-Public Use
  Company Number: DE-PFIZER INC-DE-WYE-G04780409

PATIENT
  Age: 38 Year
  Sex: Male
  Weight: 90 kg

DRUGS (9)
  1. TAVOR [Suspect]
     Dosage: UNKNOWN THERAPEUTIC DOSE
     Route: 048
  2. TIMONIL [Suspect]
     Dosage: UNKNOWN THERAPEUTIC DOSE
     Route: 048
  3. CO-DIOVAN [Suspect]
     Dosage: UNKNOWN THERAPEUTIC DOSE
     Route: 048
  4. FLUOXETINE HYDROCHLORIDE [Suspect]
     Dosage: UNKNOWN THERAPEUTIC DOSE
     Route: 048
  5. TRANXILIUM [Suspect]
     Dosage: UNKNOWN THERAPEUTIC DOSE
     Route: 048
  6. AMLODIPINE BESYLATE [Suspect]
     Dosage: UNKNOWN THERAPEUTIC DOSE
     Route: 048
  7. PROMETHAZINE [Suspect]
     Dosage: UNKNOWN THERAPEUTIC DOSE
     Route: 048
  8. LYRICA [Suspect]
     Dosage: UNKNOWN THERAPEUTIC DOSE
     Route: 048
  9. DILZEM [Suspect]
     Dosage: UNKNOWN THERAPEUTIC DOSE
     Route: 048

REACTIONS (4)
  - INTENTIONAL OVERDOSE [None]
  - SUICIDE ATTEMPT [None]
  - SOMNOLENCE [None]
  - GASTROINTESTINAL SOUNDS ABNORMAL [None]
